FAERS Safety Report 4937734-6 (Version None)
Quarter: 2006Q1

REPORT INFORMATION
  Report Type: 
  Country: None (occurrence: None)
  Receive Date: 20060302
  Receipt Date: 20060216
  Transmission Date: 20060701
  Serious: Yes (Other)
  Sender: FDA-Public Use
  Company Number: 2006-DE-00888GD

PATIENT
  Age: 32 Year
  Sex: Female

DRUGS (5)
  1. DILTIAZEM HCL [Suspect]
     Indication: PULMONARY HYPERTENSION
  2. DIGOXIN [Suspect]
     Indication: PULMONARY HYPERTENSION
  3. DIURETICS (DIURETICS) [Suspect]
     Indication: PULMONARY HYPERTENSION
  4. ANTICOAGULATION THERAPY (ANTITHROMBOTIC AGENTS) [Suspect]
     Indication: PULMONARY HYPERTENSION
  5. IMIGLUCERASE (IMIGLUCERASE) [Concomitant]

REACTIONS (5)
  - FORCED EXPIRATORY VOLUME DECREASED [None]
  - OBSTRUCTIVE AIRWAYS DISORDER [None]
  - OXYGEN SATURATION DECREASED [None]
  - THERAPY NON-RESPONDER [None]
  - VITAL CAPACITY DECREASED [None]
